FAERS Safety Report 14978509 (Version 1)
Quarter: 2018Q2

REPORT INFORMATION
  Report Type: Spontaneous
  Country: US (occurrence: US)
  Receive Date: 20180606
  Receipt Date: 20180606
  Transmission Date: 20180711
  Serious: No
  Sender: FDA-Public Use
  Company Number: US-GLAXOSMITHKLINE-US2018098166

PATIENT
  Age: 39 Year
  Sex: Male
  Weight: 89 kg

DRUGS (1)
  1. EQUATE NICOTINE [Suspect]
     Active Substance: NICOTINE
     Indication: SMOKING CESSATION THERAPY
     Dosage: 7 MG, 1D
     Dates: start: 20180527, end: 20180529

REACTIONS (2)
  - Erythema [Unknown]
  - Peripheral swelling [Unknown]
